FAERS Safety Report 4414691-2 (Version None)
Quarter: 2004Q3

REPORT INFORMATION
  Report Type: 
  Country: None (occurrence: None)
  Receive Date: 20040729
  Receipt Date: 20040722
  Transmission Date: 20050211
  Serious: Yes (Life-Threatening)
  Sender: FDA-Public Use
  Company Number: 2004UW15506

PATIENT
  Age: 7 Year
  Sex: Male

DRUGS (3)
  1. IRESSA [Suspect]
     Indication: NEUROBLASTOMA
     Dates: start: 20040629, end: 20040712
  2. IRESSA [Suspect]
     Indication: NEUROBLASTOMA
     Dosage: REDUCED BY 25%
  3. IRINOTECAN [Concomitant]

REACTIONS (6)
  - ABDOMINAL PAIN [None]
  - DECREASED APPETITE [None]
  - DEHYDRATION [None]
  - DIARRHOEA [None]
  - HYPERURICAEMIA [None]
  - NAUSEA [None]
